FAERS Safety Report 15504476 (Version 1)
Quarter: 2018Q4

REPORT INFORMATION
  Report Type: Spontaneous
  Country: US (occurrence: US)
  Receive Date: 20181009
  Receipt Date: 20181009
  Transmission Date: 20190205
  Serious: Yes (Other)
  Sender: FDA-Public Use
  Company Number: None

PATIENT
  Age: 72 Year
  Sex: Male
  Weight: 92.4 kg

DRUGS (1)
  1. IMATINIB. [Suspect]
     Active Substance: IMATINIB MESYLATE
     Indication: GASTROINTESTINAL STROMAL TUMOUR
     Route: 048
     Dates: start: 20130206, end: 20160121

REACTIONS (6)
  - Renal failure [None]
  - Chronic kidney disease [None]
  - Haemodialysis [None]
  - Tubulointerstitial nephritis [None]
  - Disease progression [None]
  - Focal segmental glomerulosclerosis [None]

NARRATIVE: CASE EVENT DATE: 20160121
